FAERS Safety Report 4598584-6 (Version None)
Quarter: 2005Q1

REPORT INFORMATION
  Report Type: 
  Country: None (occurrence: None)
  Receive Date: 20050304
  Receipt Date: 20041104
  Transmission Date: 20050727
  Serious: Yes (Life-Threatening, Hospitalization)
  Sender: FDA-Public Use
  Company Number: US-MERCK-0411USA00747

PATIENT
  Age: 52 Year
  Sex: Male

DRUGS (3)
  1. VIOXX [Suspect]
     Indication: ARTHRALGIA
     Route: 048
     Dates: start: 20000101, end: 20030101
  2. VIOXX [Suspect]
     Indication: MYALGIA
     Route: 048
     Dates: start: 20000101, end: 20030101
  3. LOTREL [Concomitant]
     Indication: HYPERTENSION
     Route: 065

REACTIONS (10)
  - ANGINA UNSTABLE [None]
  - CHEST PAIN [None]
  - CHRONIC OBSTRUCTIVE PULMONARY DISEASE [None]
  - CORONARY ARTERY ATHEROSCLEROSIS [None]
  - CORONARY ARTERY STENOSIS [None]
  - DYSPNOEA [None]
  - ELECTROCARDIOGRAM ST SEGMENT ELEVATION [None]
  - HYPERHIDROSIS [None]
  - TROPONIN INCREASED [None]
  - VENTRICULAR EXTRASYSTOLES [None]
